FAERS Safety Report 26195300 (Version 1)
Quarter: 2025Q4

REPORT INFORMATION
  Report Type: Report from Study
  Country: US (occurrence: US)
  Receive Date: 20251224
  Receipt Date: 20251224
  Transmission Date: 20260117
  Serious: Yes (Other)
  Sender: ACADIA PHARMACEUTICALS
  Company Number: US-ACADIA PHARMACEUTICALS INC.-ACA-2025-TRF-013539

PATIENT
  Sex: Female

DRUGS (2)
  1. DAYBUE [Suspect]
     Active Substance: TROFINETIDE
     Indication: Rett syndrome
     Dosage: 7.5 MILLILITER, BID
  2. DAYBUE [Suspect]
     Active Substance: TROFINETIDE
     Dosage: 5 MILLILITER

REACTIONS (3)
  - Choking [Not Recovered/Not Resolved]
  - Vomiting [Not Recovered/Not Resolved]
  - Underdose [Not Recovered/Not Resolved]
